FAERS Safety Report 4622859-5 (Version None)
Quarter: 2005Q1

REPORT INFORMATION
  Report Type: 
  Country: None (occurrence: None)
  Receive Date: 20050330
  Receipt Date: 20050318
  Transmission Date: 20050727
  Serious: Yes (Hospitalization)
  Sender: FDA-Public Use
  Company Number: RANI2005-0001 (0)

PATIENT
  Age: 75 Year
  Sex: Female

DRUGS (5)
  1. RANIMEX [Suspect]
     Dosage: 50MG PER DAY
     Route: 042
  2. ZYRTEC [Suspect]
     Dosage: 10MG PER DAY
     Route: 048
     Dates: start: 20041123
  3. DEXAMETHASONE [Suspect]
  4. PREDNISON [Suspect]
  5. TAXOL [Concomitant]
     Dates: start: 20021101

REACTIONS (9)
  - ANAPHYLACTIC SHOCK [None]
  - BLOOD PRESSURE DECREASED [None]
  - CHEST PAIN [None]
  - DYSPNOEA [None]
  - HEADACHE [None]
  - HYPERHIDROSIS [None]
  - HYPOTENSION [None]
  - NAUSEA [None]
  - SPEECH DISORDER [None]
